FAERS Safety Report 4333689-6 (Version None)
Quarter: 2004Q2

REPORT INFORMATION
  Report Type: 
  Country: None (occurrence: None)
  Receive Date: 20040402
  Receipt Date: 20040324
  Transmission Date: 20050107
  Serious: Yes (Death, Disabling)
  Sender: FDA-Public Use
  Company Number: HQWYE946507AUG03

PATIENT
  Age: 58 Year
  Sex: Female

DRUGS (2)
  1. DIMETAPP [Suspect]
     Indication: COUGH
  2. ROBITUSSIN  CF (GUAIFENESIN/DEXTROMETHORPHAN/PHENYLPROPANOLAMINE, SYRU [Suspect]
     Indication: COUGH

REACTIONS (1)
  - CEREBROVASCULAR ACCIDENT [None]
